FAERS Safety Report 9663559 (Version 5)
Quarter: 2014Q1

REPORT INFORMATION
  Report Type: Spontaneous
  Country: US (occurrence: US)
  Receive Date: 20131101
  Receipt Date: 20140124
  Transmission Date: 20141002
  Serious: No
  Sender: FDA-Public Use
  Company Number: US-PFIZER INC-2013311340

PATIENT
  Age: 59 Year
  Sex: Female
  Weight: 113.4 kg

DRUGS (26)
  1. XELJANZ [Suspect]
     Indication: RHEUMATOID ARTHRITIS
     Dosage: 5 MG, 2X/DAY
     Route: 048
     Dates: start: 2013, end: 201312
  2. XELJANZ [Suspect]
     Indication: ARTHRITIS
  3. NAPROXEN [Concomitant]
     Dosage: 250 MG
  4. NAPROXEN [Concomitant]
     Dosage: UNK
  5. LEFLUNOMIDE [Concomitant]
     Dosage: 10 MG
  6. ASPIRIN [Concomitant]
     Dosage: 324 MG
  7. TRAMADOL HYDROCHLORIDE [Concomitant]
     Dosage: 50 MG
  8. PLAVIX [Concomitant]
     Dosage: 75 MG
  9. METOPROLOL ER [Concomitant]
     Dosage: 100 MG
  10. POTASSIMIN [Concomitant]
     Dosage: 75 MG
  11. AMLODIPINE [Concomitant]
     Dosage: 2.5 MG
  12. AMLODIPINE [Concomitant]
     Dosage: UNK
  13. DEXILANT [Concomitant]
     Dosage: 30 MG
  14. VITAMIN D3 [Concomitant]
     Dosage: 10000 IU
  15. LOSARTAN POTASSIUM [Concomitant]
     Dosage: 100 MG
  16. ALBUTEROL [Concomitant]
     Dosage: AEROSOL 90 UG
  17. ATORVASTATIN [Concomitant]
     Dosage: 20 MG
  18. LORAZEPAM [Concomitant]
     Dosage: 0.5 MG
  19. BRIMONIDINE [Concomitant]
     Dosage: SOLUTION 0.2 %
     Route: 047
  20. CLONIDINE [Concomitant]
     Dosage: 0.1 MG
  21. CLONIDINE [Concomitant]
     Dosage: UNK
  22. PLAQUENIL [Concomitant]
     Dosage: 200 MG
  23. FLAX SEED OIL [Concomitant]
     Dosage: UNK
  24. FOLIC ACID [Concomitant]
     Dosage: UNK
  25. HYDROCHLOROTHIAZIDE [Concomitant]
     Dosage: UNK
  26. PANTOPRAZOLE [Concomitant]
     Dosage: UNK

REACTIONS (9)
  - Nasal congestion [Unknown]
  - Dysphonia [Unknown]
  - Malaise [Recovering/Resolving]
  - Cough [Recovering/Resolving]
  - Nasopharyngitis [Recovering/Resolving]
  - Chills [Unknown]
  - Fatigue [Unknown]
  - Hyperhidrosis [Unknown]
  - Upper respiratory tract infection [Recovered/Resolved]
